FAERS Safety Report 9587130 (Version 2)
Quarter: 2013Q4

REPORT INFORMATION
  Report Type: Spontaneous
  Country: US (occurrence: US)
  Receive Date: 20131003
  Receipt Date: 20131107
  Transmission Date: 20140711
  Serious: No
  Sender: FDA-Public Use
  Company Number: US-009507513-1309USA014112

PATIENT
  Sex: Female

DRUGS (2)
  1. PREGNYL [Suspect]
     Indication: IN VITRO FERTILISATION
     Dosage: 500-799 IU
  2. PREGNYL [Suspect]
     Indication: INFERTILITY

REACTIONS (2)
  - Ovarian hyperstimulation syndrome [Unknown]
  - Maternal exposure before pregnancy [Unknown]
